FAERS Safety Report 5123814-1 (Version None)
Quarter: 2006Q3

REPORT INFORMATION
  Report Type: 
  Country: None (occurrence: None)
  Receive Date: 20060802
  Receipt Date: 20060504
  Transmission Date: 20061208
  Serious: Yes (Other)
  Sender: FDA-Public Use
  Company Number: 2006-05-0438

PATIENT
  Sex: Female

DRUGS (2)
  1. PEGASYS [Suspect]
     Indication: HEPATITIS
     Dosage: UNKNOWN
  2. RIBAVIRIN [Suspect]
     Indication: HEPATITIS
     Dosage: UNKNOWN ORAL
     Route: 048

REACTIONS (2)
  - DEPRESSION [None]
  - RASH [None]
